FAERS Safety Report 5243876-0 (Version None)
Quarter: 2007Q1

REPORT INFORMATION
  Report Type: 
  Country: None (occurrence: None)
  Receive Date: 20070220
  Receipt Date: 20070220
  Transmission Date: 20070707
  Serious: Yes (Hospitalization)
  Sender: FDA-Public Use
  Company Number: None

PATIENT
  Age: 50 Year
  Sex: Male
  Weight: 71.2147 kg

DRUGS (1)
  1. SIROLIMUS [Suspect]
     Indication: IMMUNOSUPPRESSANT DRUG THERAPY
     Dosage: 4MG DAILY PO
     Route: 048
     Dates: start: 20070130

REACTIONS (5)
  - ASTHENIA [None]
  - DYSPNOEA [None]
  - INFECTION [None]
  - PNEUMONIA [None]
  - STOMATITIS [None]
